FAERS Safety Report 7908768-4 (Version None)
Quarter: 2011Q4

REPORT INFORMATION
  Report Type: 
  Country: None (occurrence: None)
  Receive Date: 20111111
  Receipt Date: 20111108
  Transmission Date: 20120403
  Serious: No
  Sender: FDA-Public Use
  Company Number: US-PFIZER INC-2011227505

PATIENT
  Sex: Female
  Weight: 57.1 kg

DRUGS (5)
  1. PREMPRO [Suspect]
     Dosage: 0625/2.5, 7 PO QD, { 2WKS
     Route: 048
  2. PROVERA [Concomitant]
     Dosage: UNK
  3. CYMBALTA [Concomitant]
     Dosage: 60 MG, 1X/DAY
  4. PREMARIN [Suspect]
     Indication: UTERINE LEIOMYOMA
  5. PREMARIN [Suspect]
     Indication: MENOPAUSAL SYMPTOMS
     Dosage: 0.625 MG, 1X/DAY
     Route: 048
     Dates: start: 20110916, end: 20110921

REACTIONS (7)
  - ABDOMINAL DISCOMFORT [None]
  - ABDOMINAL DISTENSION [None]
  - EATING DISORDER [None]
  - ABDOMINAL PAIN UPPER [None]
  - ILL-DEFINED DISORDER [None]
  - CHEST PAIN [None]
  - PAIN [None]
